FAERS Safety Report 8509851-5 (Version None)
Quarter: 2012Q3

REPORT INFORMATION
  Report Type: 
  Country: None (occurrence: None)
  Receive Date: 20120713
  Receipt Date: 20120702
  Transmission Date: 20120928
  Serious: No
  Sender: FDA-Public Use
  Company Number: US-ASTRAZENECA-2012SE39471

PATIENT
  Age: 60 Year
  Sex: Female

DRUGS (3)
  1. SEROQUEL XR [Suspect]
     Indication: DEPRESSION
     Route: 048
  2. SEROQUEL XR [Suspect]
     Indication: ANXIETY
     Route: 048
  3. SEROQUEL XR [Suspect]
     Indication: PANIC ATTACK
     Route: 048

REACTIONS (5)
  - ILLUSION [None]
  - MEMORY IMPAIRMENT [None]
  - ADVERSE EVENT [None]
  - DEPRESSED MOOD [None]
  - ROAD TRAFFIC ACCIDENT [None]
